FAERS Safety Report 10792339 (Version 1)
Quarter: 2015Q1

REPORT INFORMATION
  Report Type: Spontaneous
  Country: US (occurrence: US)
  Receive Date: 20150213
  Receipt Date: 20150213
  Transmission Date: 20150721
  Serious: No
  Sender: FDA-Public Use
  Company Number: US-ASTRAZENECA-2015SE12733

PATIENT
  Age: 40 Year
  Sex: Female
  Weight: 120.2 kg

DRUGS (9)
  1. PLAQUENIL GENERIC [Concomitant]
     Indication: SYSTEMIC LUPUS ERYTHEMATOSUS
     Route: 048
     Dates: start: 2005
  2. AMLOPDIPINE [Concomitant]
     Indication: HYPERTENSION
     Route: 048
     Dates: start: 2007
  3. MELOXICAM. [Concomitant]
     Active Substance: MELOXICAM
     Indication: INFLAMMATION
     Route: 048
     Dates: start: 201411
  4. NEXIUM [Suspect]
     Active Substance: ESOMEPRAZOLE MAGNESIUM
     Indication: GASTROOESOPHAGEAL REFLUX DISEASE
     Route: 048
     Dates: start: 2004, end: 2014
  5. NEXIUM 24HR [Suspect]
     Active Substance: ESOMEPRAZOLE MAGNESIUM
     Indication: GASTROOESOPHAGEAL REFLUX DISEASE
     Route: 048
     Dates: start: 2014
  6. MELOXICAM. [Concomitant]
     Active Substance: MELOXICAM
     Indication: ARTHRALGIA
     Route: 048
     Dates: start: 201411
  7. CITALOPRAM [Concomitant]
     Active Substance: CITALOPRAM HYDROBROMIDE
     Indication: DEPRESSION
     Route: 048
     Dates: start: 2000
  8. ZOLPIDEM [Concomitant]
     Active Substance: ZOLPIDEM\ZOLPIDEM TARTRATE
     Indication: SLEEP DISORDER
     Route: 048
  9. MULTIVITAMIN [Concomitant]
     Active Substance: VITAMINS
     Indication: GENERAL SYMPTOM
     Route: 048

REACTIONS (7)
  - Granuloma [Unknown]
  - Drug ineffective [Unknown]
  - Off label use [Unknown]
  - Asthma [Unknown]
  - Systemic lupus erythematosus [Not Recovered/Not Resolved]
  - Sinusitis [Unknown]
  - Hypersensitivity [Unknown]

NARRATIVE: CASE EVENT DATE: 2005
